FAERS Safety Report 9380581 (Version 2)
Quarter: 2013Q3

REPORT INFORMATION
  Report Type: Spontaneous
  Country: FR (occurrence: None)
  Receive Date: 20130628
  Receipt Date: 20130709
  Transmission Date: 20140515
  Serious: Yes (Hospitalization)
  Sender: FDA-Public Use
  Company Number: 2013-2597

PATIENT
  Age: 76 Year
  Sex: Male

DRUGS (2)
  1. SOMATULINE [Suspect]
     Indication: ACROMEGALY
     Route: 058
     Dates: start: 2013, end: 20130416
  2. SOMAVERT (PEGVISOMANT) [Concomitant]

REACTIONS (4)
  - Cholelithiasis [None]
  - Mixed liver injury [None]
  - Inappropriate schedule of drug administration [None]
  - Cell death [None]
